FAERS Safety Report 9013598 (Version 2)
Quarter: 2013Q1

REPORT INFORMATION
  Report Type: Spontaneous
  Country: IN (occurrence: IN)
  Receive Date: 20130115
  Receipt Date: 20130118
  Transmission Date: 20140127
  Serious: Yes (Death)
  Sender: FDA-Public Use
  Company Number: PHHY2013IN002795

PATIENT
  Age: 63 Year
  Sex: Male

DRUGS (7)
  1. GLIVEC [Suspect]
     Indication: CHRONIC MYELOID LEUKAEMIA
     Dosage: 400 MG, UNK
  2. ECOSPRIN [Concomitant]
     Indication: DIABETES MELLITUS
     Route: 048
  3. MONTRATE [Concomitant]
     Indication: HYPERTENSION
     Dosage: UNK UKN, UNK
  4. DYNAPRES [Concomitant]
     Indication: MYOCARDIAL ISCHAEMIA
     Dosage: UNK UKN, UNK
  5. MYCONORM-F [Concomitant]
     Dosage: UNK UKN, UNK
     Route: 048
  6. RAMCOR [Concomitant]
     Dosage: UNK UKN, UNK
  7. ZOREM [Concomitant]
     Dosage: UNK UKN, UNK

REACTIONS (2)
  - Death [Fatal]
  - Loss of consciousness [Unknown]
